FAERS Safety Report 4844635-0 (Version None)
Quarter: 2005Q4

REPORT INFORMATION
  Report Type: 
  Country: None (occurrence: None)
  Receive Date: 20051205
  Receipt Date: 20050824
  Transmission Date: 20060501
  Serious: Yes (Death, Hospitalization)
  Sender: FDA-Public Use
  Company Number: GB-AMGEN-UK148019

PATIENT
  Sex: Male
  Weight: 59 kg

DRUGS (10)
  1. KINERET [Suspect]
     Indication: RHEUMATOID ARTHRITIS
     Route: 058
     Dates: start: 20050311, end: 20050322
  2. METHOTREXATE [Suspect]
     Route: 048
     Dates: start: 20041101
  3. HYDROCORTISONE [Suspect]
     Route: 065
  4. FOLIC ACID [Concomitant]
     Route: 065
     Dates: start: 20041101
  5. ATORVASTATIN CALCIUM [Concomitant]
     Route: 048
  6. PERINDOPRIL [Concomitant]
     Route: 048
  7. CELEBREX [Concomitant]
     Route: 048
     Dates: start: 20050602
  8. WARFARIN [Concomitant]
     Route: 048
  9. ZANTAC [Concomitant]
     Route: 048
  10. VOLTAREN [Concomitant]
     Route: 048

REACTIONS (12)
  - ARM AMPUTATION [None]
  - ARTHRALGIA [None]
  - DIARRHOEA [None]
  - DRUG INEFFECTIVE [None]
  - GANGRENE [None]
  - NECROTISING FASCIITIS STREPTOCOCCAL [None]
  - RENAL FAILURE [None]
  - STREPTOCOCCAL SEPSIS [None]
  - THERAPY NON-RESPONDER [None]
  - VENOUS THROMBOSIS LIMB [None]
  - VOMITING [None]
  - WHITE BLOOD CELL COUNT DECREASED [None]
